FAERS Safety Report 11698437 (Version 1)
Quarter: 2015Q4

REPORT INFORMATION
  Report Type: Report from Study
  Country: BR (occurrence: BR)
  Receive Date: 20151104
  Receipt Date: 20151104
  Transmission Date: 20160304
  Serious: Yes (Death)
  Sender: FDA-Public Use
  Company Number: PHHY2015BR143812

PATIENT
  Sex: Male
  Weight: 80 kg

DRUGS (1)
  1. EXELON PATCH [Suspect]
     Active Substance: RIVASTIGMINE
     Indication: PARKINSON^S DISEASE
     Dosage: USED 20 EXELON PATCHES, QD
     Route: 062
     Dates: start: 201505

REACTIONS (1)
  - Infarction [Fatal]
